FAERS Safety Report 8563492 (Version 3)
Quarter: 2012Q4

REPORT INFORMATION
  Report Type: Report from Study
  Country: JP (occurrence: JP)
  Receive Date: 20120515
  Receipt Date: 20121121
  Transmission Date: 20130627
  Serious: Yes (Hospitalization, Other)
  Sender: FDA-Public Use
  Company Number: JP-GENZYME-THYM-1003247

PATIENT
  Age: 1 Year
  Sex: Male
  Weight: 11 kg

DRUGS (32)
  1. THYMOGLOBULIN [Suspect]
     Indication: BONE MARROW CONDITIONING REGIMEN
     Dosage: 21 mg, qd
     Route: 042
     Dates: start: 20110918, end: 20110921
  2. FLUDARA [Suspect]
     Indication: BONE MARROW CONDITIONING REGIMEN
     Dosage: UNK
     Route: 065
     Dates: start: 20110917, end: 20110920
  3. CYCLOPHOSPHAMIDE [Concomitant]
     Indication: BONE MARROW CONDITIONING REGIMEN
     Dosage: UNK
     Route: 065
     Dates: start: 20110920, end: 20110920
  4. METHOTREXATE [Concomitant]
     Indication: PROPHYLAXIS AGAINST GRAFT VERSUS HOST DISEASE
     Dosage: UNK
     Route: 065
     Dates: start: 20110924, end: 20110924
  5. METHOTREXATE [Concomitant]
     Dosage: UNK
     Route: 065
     Dates: start: 20110926, end: 20110926
  6. METHOTREXATE [Concomitant]
     Dosage: UNK
     Route: 065
     Dates: start: 20110929, end: 20111029
  7. METHOTREXATE [Concomitant]
     Dosage: UNK
     Route: 065
     Dates: start: 20111004, end: 20111004
  8. METHYLPREDNISOLONE SODIUM SUCCINATE [Concomitant]
     Indication: PREMEDICATION
     Dosage: UNK
     Route: 065
     Dates: start: 20110918, end: 20110922
  9. METHYLPREDNISOLONE SODIUM SUCCINATE [Concomitant]
     Indication: GRAFT VERSUS HOST DISEASE
     Dosage: UNK
     Route: 065
     Dates: start: 20120126, end: 20120213
  10. ACICLOVIR [Concomitant]
     Indication: ANTIVIRAL PROPHYLAXIS
     Dosage: UNK
     Route: 065
     Dates: start: 20110918, end: 20111109
  11. GRANISETRON HYDROCHLORIDE [Concomitant]
     Indication: PROPHYLAXIS OF NAUSEA AND VOMITING
     Dosage: UNK
     Route: 065
     Dates: start: 20110914, end: 20110920
  12. MESNA [Concomitant]
     Indication: PROPHYLAXIS
     Dosage: UNK
     Route: 065
     Dates: start: 20110918, end: 20110920
  13. MICAFUNGIN SODIUM [Concomitant]
     Indication: ANTIFUNGAL PROPHYLAXIS
     Dosage: UNK
     Route: 065
     Dates: start: 20110923, end: 20111017
  14. PIPERACILLIN W [Concomitant]
     Indication: INFECTION PROPHYLAXIS
     Dosage: UNK
     Route: 065
     Dates: start: 20110926, end: 20111009
  15. PIPERACILLIN W [Concomitant]
     Dosage: UNK
     Dates: start: 20111112, end: 20111116
  16. TACROLIMUS [Concomitant]
     Indication: PROPHYLAXIS AGAINST GRAFT VERSUS HOST DISEASE
     Dosage: UNK
     Route: 065
     Dates: start: 20110925, end: 20111107
  17. TACROLIMUS [Concomitant]
     Dosage: UNK
     Route: 065
     Dates: start: 20111201, end: 20120209
  18. TACROLIMUS [Concomitant]
     Dosage: UNK
     Route: 065
     Dates: start: 20111108, end: 20111201
  19. TACROLIMUS [Concomitant]
     Dosage: UNK
     Route: 065
     Dates: start: 20110209
  20. CEFPIROME SULFATE [Concomitant]
     Indication: INFECTION PROPHYLAXIS
     Dosage: UNK
     Route: 065
     Dates: start: 20111109, end: 20111111
  21. CLONAZEPAM [Concomitant]
     Indication: PROPHYLAXIS
     Dosage: UNK
     Route: 065
     Dates: start: 20110913, end: 20110918
  22. NORFLOXACIN [Concomitant]
     Indication: INFECTION PROPHYLAXIS
     Dosage: UNK
     Route: 065
     Dates: start: 20110913, end: 20111020
  23. POLYMYXIN B SULFATE [Concomitant]
     Indication: INFECTION PROPHYLAXIS
     Dosage: UNK
     Route: 065
  24. URSODEOXYCHOLIC ACID [Concomitant]
     Indication: PROPHYLAXIS
     Dosage: UNK
     Route: 065
     Dates: start: 20110913, end: 20111020
  25. AMPHOTERICIN B [Concomitant]
     Indication: ANTIFUNGAL PROPHYLAXIS
     Dosage: UNK
     Route: 065
     Dates: start: 20110910
  26. DEXAMETHASONE [Concomitant]
     Indication: PREMEDICATION
     Dosage: UNK
     Route: 065
     Dates: start: 20110919, end: 20110925
  27. SULFAMETHOPRIM [Concomitant]
     Indication: ANTIFUNGAL PROPHYLAXIS
     Dosage: UNK
     Route: 065
     Dates: start: 20111031
  28. METHYLPREDNISOLONE [Concomitant]
     Indication: PROPHYLAXIS AGAINST GRAFT VERSUS HOST DISEASE
     Dosage: UNK
     Dates: start: 20120214
  29. PLATELETS, CONCENTRATED [Concomitant]
     Indication: PLATELET COUNT DECREASED
     Dosage: UNK
     Route: 065
     Dates: start: 20110926, end: 20111011
  30. RED BLOOD CELLS, CONCENTRATED [Concomitant]
     Indication: ANAEMIA
     Dosage: UNK
     Route: 065
     Dates: start: 20111005, end: 20111005
  31. DONOR LYMPHOCYTE INFUSION [Concomitant]
     Indication: CHIMERISM
     Dosage: UNK
     Dates: start: 20111222, end: 20111222
  32. DONOR LYMPHOCYTE INFUSION [Concomitant]
     Dosage: UNK
     Route: 065
     Dates: start: 20120105, end: 20120105

REACTIONS (10)
  - Acute graft versus host disease in skin [Unknown]
  - Chronic graft versus host disease [Unknown]
  - Chronic graft versus host disease [Unknown]
  - Post transplant lymphoproliferative disorder [Recovered/Resolved]
  - Epstein-Barr virus infection [Recovered/Resolved]
  - Urticaria [Recovered/Resolved]
  - Platelet count decreased [Recovered/Resolved]
  - Pyrexia [Recovered/Resolved]
  - Hepatic function abnormal [Recovered/Resolved]
  - Oxygen saturation decreased [Recovered/Resolved]
